FAERS Safety Report 8610813 (Version 3)
Quarter: 2012Q4

REPORT INFORMATION
  Report Type: 
  Country: JP (occurrence: JP)
  Receive Date: 20120612
  Receipt Date: 20121119
  Transmission Date: 20130627
  Serious: Yes (Death, Hospitalization)
  Sender: FDA-Public Use
  Company Number: JP-BAYER-2012-055695

PATIENT
  Age: 85 Year
  Sex: Male

DRUGS (1)
  1. NEXAVAR [Suspect]
     Indication: CARCINOMA HEPATOCELLULAR
     Dosage: Daily dose 400 mg
     Route: 048
     Dates: start: 201106

REACTIONS (4)
  - Sarcoma [Fatal]
  - Malignant ascites [Fatal]
  - Palmar-plantar erythrodysaesthesia syndrome [None]
  - Decreased appetite [None]
